FAERS Safety Report 5638904-4 (Version None)
Quarter: 2008Q1

REPORT INFORMATION
  Report Type: 
  Country: None (occurrence: None)
  Receive Date: 20080225
  Receipt Date: 20080225
  Transmission Date: 20080703
  Serious: No
  Sender: FDA-Public Use
  Company Number: None

PATIENT
  Age: 40 Year
  Sex: Male
  Weight: 73 kg

DRUGS (2)
  1. PROMETHAZINE [Suspect]
     Indication: NAUSEA
     Dosage: 25MG QID PO
     Route: 048
     Dates: start: 20080122, end: 20080130
  2. PROMETHAZINE [Suspect]
     Indication: VOMITING
     Dosage: 25MG QID PO
     Route: 048
     Dates: start: 20080122, end: 20080130

REACTIONS (3)
  - CONVULSION [None]
  - DYSTONIA [None]
  - EXTRAPYRAMIDAL DISORDER [None]
